FAERS Safety Report 6483834-1 (Version None)
Quarter: 2009Q4

REPORT INFORMATION
  Report Type: 
  Country: None (occurrence: None)
  Receive Date: 20091207
  Receipt Date: 20091207
  Transmission Date: 20100525
  Serious: No
  Sender: FDA-Public Use
  Company Number: None

PATIENT
  Age: 51 Year
  Sex: Female
  Weight: 68.0396 kg

DRUGS (8)
  1. COLD REMEDY RAPIDMELTS [Suspect]
     Dosage: Q3 HOURS
     Dates: start: 20091108
  2. ZESTRIL [Concomitant]
  3. COREG [Concomitant]
  4. DIGOXIN [Concomitant]
  5. SYNTHROID [Concomitant]
  6. BENADRYL [Concomitant]
  7. HYDROCODONE [Concomitant]
  8. COLDEEZE [Concomitant]

REACTIONS (2)
  - DIARRHOEA [None]
  - DYSGEUSIA [None]
